FAERS Safety Report 23971859 (Version 5)
Quarter: 2024Q3

REPORT INFORMATION
  Report Type: Report from Study
  Country: US (occurrence: US)
  Receive Date: 20240613
  Receipt Date: 20240729
  Transmission Date: 20241016
  Serious: Yes (Other)
  Sender: MERCK
  Company Number: US-009507513-2406USA003081

PATIENT
  Age: 52 Year
  Sex: Female
  Weight: 110.1 kg

DRUGS (4)
  1. SOTATERCEPT [Suspect]
     Active Substance: SOTATERCEPT
     Indication: Pulmonary arterial hypertension
     Dosage: STRENGHT: 45 MG, 0.3 MG/KG (0.7ML) Q3W
     Route: 058
     Dates: start: 202406, end: 20240610
  2. SOTATERCEPT [Suspect]
     Active Substance: SOTATERCEPT
     Dosage: INJECT 0.7 ML UNDER THE SKIN FOR 1 DOSE, THEN INCREASE TO 1.6 ML FOR TARGET DOSE
     Route: 058
     Dates: start: 20240712
  3. WARFARIN [Concomitant]
     Active Substance: WARFARIN
     Indication: Cardiac valve disease
     Dosage: UNK
  4. OPSUMIT [Concomitant]
     Active Substance: MACITENTAN

REACTIONS (7)
  - Rectal haemorrhage [Not Recovered/Not Resolved]
  - Gastrointestinal haemorrhage [Recovered/Resolved]
  - Abdominal pain [Recovered/Resolved]
  - Haemorrhoids [Unknown]
  - Device leakage [Unknown]
  - Wrong technique in device usage process [Unknown]
  - Product preparation error [Unknown]

NARRATIVE: CASE EVENT DATE: 20240608
